FAERS Safety Report 23423218 (Version 1)
Quarter: 2024Q1

REPORT INFORMATION
  Report Type: Spontaneous
  Country: DE (occurrence: DE)
  Receive Date: 20240119
  Receipt Date: 20240119
  Transmission Date: 20240410
  Serious: Yes (Hospitalization, Other)
  Sender: FDA-Public Use
  Company Number: DE-JNJFOC-20240139341

PATIENT
  Age: 49 Year

DRUGS (2)
  1. REMICADE [Suspect]
     Active Substance: INFLIXIMAB
     Indication: Proctitis ulcerative
     Dosage: THE PATIENT RECEIVED 2 DOSES OF INFLIXIMAB
     Route: 041
     Dates: start: 202006
  2. MESALAMINE [Concomitant]
     Active Substance: MESALAMINE
     Indication: Proctitis ulcerative
     Route: 048

REACTIONS (8)
  - Respiratory failure [Unknown]
  - Proctitis ulcerative [Unknown]
  - Tremor [Unknown]
  - Cold sweat [Unknown]
  - Cough [Unknown]
  - Dyspnoea [Unknown]
  - Spondylitis [Unknown]
  - Herpes zoster [Unknown]

NARRATIVE: CASE EVENT DATE: 20200101
